FAERS Safety Report 6735996-6 (Version None)
Quarter: 2010Q2

REPORT INFORMATION
  Report Type: 
  Country: None (occurrence: None)
  Receive Date: 20100521
  Receipt Date: 20100510
  Transmission Date: 20101027
  Serious: Yes (Other)
  Sender: FDA-Public Use
  Company Number: US-ELI_LILLY_AND_COMPANY-US201005002939

PATIENT
  Sex: Male

DRUGS (1)
  1. HUMATROPE [Suspect]
     Indication: BRAIN OPERATION
     Dosage: UNK, DAILY (1/D)
     Dates: start: 20060101

REACTIONS (4)
  - DEVICE BREAKAGE [None]
  - INCORRECT DOSE ADMINISTERED [None]
  - INTRAOCULAR LENS IMPLANT [None]
  - VISUAL ACUITY REDUCED [None]
